FAERS Safety Report 6964505-1 (Version None)
Quarter: 2010Q3

REPORT INFORMATION
  Report Type: 
  Country: None (occurrence: None)
  Receive Date: 20100903
  Receipt Date: 20100824
  Transmission Date: 20110219
  Serious: Yes (Hospitalization, Disabling)
  Sender: FDA-Public Use
  Company Number: JP-PFIZER INC-2010092047

PATIENT
  Age: 37 Year
  Sex: Male
  Weight: 60 kg

DRUGS (21)
  1. SUNITINIB MALATE [Suspect]
     Indication: RENAL CELL CARCINOMA
     Dosage: 50 MG, 1X/DAY
     Dates: start: 20090722, end: 20090810
  2. TRANEXAMIC ACID [Concomitant]
     Indication: RENAL CELL CARCINOMA
     Dosage: 250 MG, 3X/DAY
     Route: 048
     Dates: end: 20090723
  3. TRANEXAMIC ACID [Concomitant]
     Dosage: 500 MG, 3X/DAY
     Route: 048
     Dates: start: 20090724, end: 20090730
  4. AMOBAN [Concomitant]
     Indication: INSOMNIA
     Dosage: 7.5 MG, 1X/DAY
     Route: 048
     Dates: start: 20090722, end: 20090723
  5. OXYCONTIN [Concomitant]
     Indication: RENAL CELL CARCINOMA
     Dosage: 20 MG, 2X/DAY
     Route: 048
  6. LOXOPROFEN [Concomitant]
     Indication: RENAL CELL CARCINOMA
     Dosage: SINGLE USE
     Route: 048
     Dates: start: 20090722
  7. SOLDEM 1 [Concomitant]
     Indication: RENAL CELL CARCINOMA
     Dosage: 500 ML, 1X/DAY
     Route: 042
     Dates: end: 20090723
  8. SOLDEM 1 [Concomitant]
     Indication: FLUID REPLACEMENT
     Dosage: 500 ML, 2X/DAY
     Route: 042
     Dates: start: 20090731, end: 20090731
  9. SOLDEM 1 [Concomitant]
     Dosage: 500 ML, 1X/DAY
     Route: 042
     Dates: start: 20090801, end: 20090803
  10. LACTEC [Concomitant]
     Indication: RENAL CELL CARCINOMA
     Dosage: 500 ML, 1X/DAY
     Route: 042
     Dates: end: 20090723
  11. LACTEC [Concomitant]
     Dosage: 500 ML, 1X/DAY
     Route: 042
     Dates: start: 20090725, end: 20090728
  12. LACTEC [Concomitant]
     Dosage: 500 ML, 2X/DAY
     Route: 042
     Dates: start: 20090731, end: 20090801
  13. LACTEC [Concomitant]
     Dosage: 500 ML, 1X/DAY
     Route: 042
     Dates: start: 20090801, end: 20090803
  14. OPSO [Concomitant]
     Indication: RENAL CELL CARCINOMA
     Dosage: UNK
     Route: 048
     Dates: start: 20090723
  15. ROCEPHIN [Concomitant]
     Dosage: 1 G, 2X/DAY
     Route: 042
     Dates: start: 20090727, end: 20090803
  16. MORPHINE HYDROCHLORIDE [Concomitant]
     Dosage: 10 MG, 1X/DAY
     Route: 042
     Dates: start: 20090731, end: 20090731
  17. ATARAX [Concomitant]
     Dosage: 25 MG, 1X/DAY
     Route: 042
     Dates: start: 20090731, end: 20090731
  18. MAG-LAX [Concomitant]
     Indication: PROPHYLAXIS
     Dosage: 660 MG, 3X/DAY
     Route: 048
     Dates: start: 20090726
  19. LEVOFLOXACIN [Concomitant]
     Indication: RENAL CELL CARCINOMA
     Dosage: 400 MG, UNK
     Route: 048
     Dates: start: 20090804, end: 20090810
  20. FLURBIPROFEN [Concomitant]
     Dosage: 50 MG, 1X/DAY
     Route: 042
     Dates: start: 20090731, end: 20090731
  21. PURSENNID [Concomitant]
     Dosage: 12 MG, AS NEEDED
     Route: 048
     Dates: start: 20090831

REACTIONS (5)
  - ASPARTATE AMINOTRANSFERASE INCREASED [None]
  - BLOOD ALKALINE PHOSPHATASE INCREASED [None]
  - BLOOD THYROID STIMULATING HORMONE INCREASED [None]
  - HAEMORRHAGE [None]
  - WHITE BLOOD CELL COUNT DECREASED [None]
